FAERS Safety Report 5535978-6 (Version None)
Quarter: 2007Q4

REPORT INFORMATION
  Report Type: 
  Country: None (occurrence: None)
  Receive Date: 20071206
  Receipt Date: 20071130
  Transmission Date: 20080405
  Serious: Yes (Hospitalization)
  Sender: FDA-Public Use
  Company Number: JP-WYE-H01533207

PATIENT
  Age: 52 Year
  Sex: Male

DRUGS (3)
  1. MYLOTARG [Suspect]
     Indication: ACUTE PROMYELOCYTIC LEUKAEMIA
     Route: 041
     Dates: start: 20071003, end: 20071003
  2. MYLOTARG [Suspect]
     Route: 041
     Dates: start: 20071018, end: 20071018
  3. ZOVIRAX [Concomitant]
     Dosage: NOT PROVIDED
     Route: 048

REACTIONS (1)
  - CYSTITIS HAEMORRHAGIC [None]
